FAERS Safety Report 5069434-9 (Version None)
Quarter: 2006Q3

REPORT INFORMATION
  Report Type: 
  Country: None (occurrence: None)
  Receive Date: 20060714
  Receipt Date: 20060418
  Transmission Date: 20061208
  Serious: No
  Sender: FDA-Public Use
  Company Number: 2006SP001749

PATIENT
  Age: 49 Year
  Sex: Male
  Weight: 72.5755 kg

DRUGS (3)
  1. LUNESTA [Suspect]
     Indication: INSOMNIA
     Dosage: 3 MG;PRN;ORAL
     Route: 048
     Dates: start: 20060324
  2. XANAX [Concomitant]
  3. AMBIEN [Concomitant]

REACTIONS (4)
  - DYSGEUSIA [None]
  - INSOMNIA [None]
  - MOUTH ULCERATION [None]
  - SOMNOLENCE [None]
